FAERS Safety Report 5022477-3 (Version None)
Quarter: 2006Q2

REPORT INFORMATION
  Report Type: 
  Country: None (occurrence: None)
  Receive Date: 20060609
  Receipt Date: 20060224
  Transmission Date: 20061013
  Serious: Yes (Hospitalization)
  Sender: FDA-Public Use
  Company Number: JP-ROCHE-438588

PATIENT
  Age: 17 Year
  Sex: Male
  Weight: 55 kg

DRUGS (3)
  1. TAMIFLU [Suspect]
     Indication: INFLUENZA
     Route: 048
     Dates: start: 20060113, end: 20060117
  2. CALONAL [Concomitant]
     Route: 048
     Dates: start: 20060113, end: 20060117
  3. MEDICON [Concomitant]
     Route: 048
     Dates: start: 20060113, end: 20060117

REACTIONS (1)
  - DEPRESSED LEVEL OF CONSCIOUSNESS [None]
